FAERS Safety Report 20430350 (Version 1)
Quarter: 2022Q1

REPORT INFORMATION
  Report Type: Report from Study
  Country: FR (occurrence: FR)
  Receive Date: 20220204
  Receipt Date: 20220204
  Transmission Date: 20220423
  Serious: Yes (Other)
  Sender: FDA-Public Use
  Company Number: FR-SERVIER-S20005975

PATIENT

DRUGS (10)
  1. PEGASPARGASE [Suspect]
     Active Substance: PEGASPARGASE
     Indication: Acute lymphocytic leukaemia
     Dosage: 1600 IU, D15, D43
     Route: 042
     Dates: start: 20200221, end: 20200327
  2. MERCAPTOPURINE [Suspect]
     Active Substance: MERCAPTOPURINE
     Indication: Acute lymphocytic leukaemia
     Dosage: 38 MG, D1 TO D14, D29 TO D42
     Route: 048
     Dates: start: 20200207, end: 20200326
  3. CYCLOPHOSPHAMIDE [Suspect]
     Active Substance: CYCLOPHOSPHAMIDE
     Indication: Acute lymphocytic leukaemia
     Dosage: 650 MG, D1,D29
     Route: 042
     Dates: start: 20200207, end: 20200313
  4. VINCRISTINE [Suspect]
     Active Substance: VINCRISTINE
     Indication: Acute lymphocytic leukaemia
     Dosage: 0,9 MG, ON D15, D22, D43, D50
     Route: 042
     Dates: start: 20200221, end: 20200404
  5. CYTARABINE [Suspect]
     Active Substance: CYTARABINE
     Indication: Acute lymphocytic leukaemia
     Dosage: 49 MG, D3 TO D6,D10 TO D13,D31,D34
     Route: 042
     Dates: start: 20200210, end: 20200326
  6. CYTARABINE [Suspect]
     Active Substance: CYTARABINE
     Dosage: 30 MG, D3,D16,D31,D46
     Route: 037
     Dates: start: 20200210, end: 20200330
  7. METHOTREXATE [Suspect]
     Active Substance: METHOTREXATE
     Indication: Acute lymphocytic leukaemia
     Dosage: 12 MG, D3,D16,D31,D46
     Route: 037
     Dates: start: 20200210, end: 20200330
  8. HYDROCORTISONE SODIUM SUCCINATE [Suspect]
     Active Substance: HYDROCORTISONE SODIUM SUCCINATE
     Indication: Acute lymphocytic leukaemia
     Dosage: 15 MG, D3,D16,D31,D46
     Route: 037
     Dates: start: 20200210, end: 20200330
  9. PIPERACILLIN SODIUM\TAZOBACTAM SODIUM [Concomitant]
     Active Substance: PIPERACILLIN SODIUM\TAZOBACTAM SODIUM
     Indication: Infection
     Dosage: 4000 MG
     Route: 042
     Dates: start: 20200409
  10. TN UNSPECIFIED [Concomitant]
     Indication: Infection
     Dosage: 960 MG
     Route: 042
     Dates: start: 20200412

REACTIONS (2)
  - Fungal infection [Not Recovered/Not Resolved]
  - Hyperbilirubinaemia [Recovered/Resolved]

NARRATIVE: CASE EVENT DATE: 20200327
